FAERS Safety Report 6087951-X (Version None)
Quarter: 2009Q1

REPORT INFORMATION
  Report Type: 
  Country: None (occurrence: None)
  Receive Date: 20090223
  Receipt Date: 20090213
  Transmission Date: 20090719
  Serious: Yes (Life-Threatening, Disabling)
  Sender: FDA-Public Use
  Company Number: US-GENENTECH-276449

PATIENT
  Sex: Female

DRUGS (4)
  1. RITUXAN [Suspect]
     Indication: DERMATOMYOSITIS
     Dosage: 1000 MG, DAYS 1+15
     Route: 042
     Dates: start: 20081013
  2. METHOTREXATE [Suspect]
     Indication: DERMATOMYOSITIS
     Dosage: 25 MG, 1/WEEK
     Route: 058
     Dates: start: 20060601
  3. PREDNISONE TAB [Suspect]
     Indication: DERMATOMYOSITIS
     Dosage: 20 MG, QD
     Route: 048
     Dates: start: 20060501
  4. INFLIXIMAB [Suspect]
     Indication: DERMATOMYOSITIS
     Dosage: 400 MG, Q8W
     Route: 042
     Dates: start: 20080313, end: 20080821

REACTIONS (1)
  - PROGRESSIVE MULTIFOCAL LEUKOENCEPHALOPATHY [None]
